FAERS Safety Report 19595117 (Version 1)
Quarter: 2021Q3

REPORT INFORMATION
  Report Type: Spontaneous
  Country: FR (occurrence: FR)
  Receive Date: 20210723
  Receipt Date: 20210723
  Transmission Date: 20211014
  Serious: Yes (Hospitalization)
  Sender: FDA-Public Use
  Company Number: FR-BEH-2021134136

PATIENT
  Age: 66 Year
  Sex: Male
  Weight: 57.3 kg

DRUGS (2)
  1. KIOVIG [Suspect]
     Active Substance: HUMAN IMMUNOGLOBULIN G
     Indication: HYPOGAMMAGLOBULINAEMIA
     Dosage: UNK UNK, TOT
     Route: 048
     Dates: start: 20210215, end: 20210215
  2. PRIVIGEN [Suspect]
     Active Substance: HUMAN IMMUNOGLOBULIN G
     Indication: HYPOGAMMAGLOBULINAEMIA
     Dosage: UNK, TOT
     Route: 048
     Dates: start: 20210205, end: 20210205

REACTIONS (5)
  - No adverse event [Unknown]
  - Back pain [Recovered/Resolved]
  - Administration related reaction [Recovered/Resolved]
  - Off label use [Unknown]
  - Chills [Recovered/Resolved]

NARRATIVE: CASE EVENT DATE: 202102
